FAERS Safety Report 10051577 (Version 1)
Quarter: 2014Q2

REPORT INFORMATION
  Report Type: Spontaneous
  Country: NG (occurrence: NG)
  Receive Date: 20140401
  Receipt Date: 20140401
  Transmission Date: 20141212
  Serious: Yes (Other)
  Sender: FDA-Public Use
  Company Number: NG-B.I. PHARMACEUTICALS,INC./RIDGEFIELD-2014-BI-13767GD

PATIENT
  Age: 8 Year
  Sex: Male

DRUGS (3)
  1. NEVIRAPINE [Suspect]
     Indication: HIV INFECTION WHO CLINICAL STAGE IV
     Route: 065
  2. ZIDOVUDINE [Suspect]
     Indication: HIV INFECTION WHO CLINICAL STAGE IV
     Route: 065
  3. LAMIVUDINE [Suspect]
     Indication: HIV INFECTION WHO CLINICAL STAGE IV
     Route: 065

REACTIONS (5)
  - Drug ineffective [Unknown]
  - Tuberculosis [Unknown]
  - Oral candidiasis [Unknown]
  - Alopecia [Unknown]
  - Hyponatraemia [Unknown]
